FAERS Safety Report 14805935 (Version 4)
Quarter: 2018Q3

REPORT INFORMATION
  Report Type: Spontaneous
  Country: US (occurrence: US)
  Receive Date: 20180425
  Receipt Date: 20180803
  Transmission Date: 20181010
  Serious: Yes (Death, Hospitalization)
  Sender: FDA-Public Use
  Company Number: US-JNJFOC-20180430432

PATIENT
  Age: 82 Year
  Sex: Female

DRUGS (2)
  1. XARELTO [Suspect]
     Active Substance: RIVAROXABAN
     Indication: THROMBOSIS PROPHYLAXIS
     Dosage: VARYING DOSES FROM 15 MG TO 50 MG
     Route: 048
     Dates: start: 20150408, end: 20150429
  2. XARELTO [Suspect]
     Active Substance: RIVAROXABAN
     Indication: THROMBOSIS PROPHYLAXIS
     Dosage: VARYING DOSES FROM 15 MG TO 50 MG
     Route: 048
     Dates: start: 20150408, end: 20150429

REACTIONS (6)
  - Chronic obstructive pulmonary disease [Fatal]
  - Increased tendency to bruise [Unknown]
  - Drug prescribing error [Unknown]
  - Cardio-respiratory arrest [Fatal]
  - Haematuria traumatic [Unknown]
  - Off label use [Unknown]

NARRATIVE: CASE EVENT DATE: 20150408
